FAERS Safety Report 12078866 (Version 3)
Quarter: 2016Q2

REPORT INFORMATION
  Report Type: Report from Study
  Country: DE (occurrence: DE)
  Receive Date: 20160216
  Receipt Date: 20160622
  Transmission Date: 20160815
  Serious: Yes (Other)
  Sender: FDA-Public Use
  Company Number: PHHO2016DE002051

PATIENT
  Age: 34 Year
  Sex: Female
  Weight: 105 kg

DRUGS (6)
  1. BUDESONID [Concomitant]
     Active Substance: BUDESONIDE
     Indication: ASTHMA
     Dosage: 200 UG, PRN
     Route: 065
     Dates: start: 201002
  2. CANDESARTAN [Concomitant]
     Active Substance: CANDESARTAN
     Indication: HYPERTENSION
     Dosage: 8 MG, QD
     Route: 065
     Dates: start: 201507
  3. AIN457 [Suspect]
     Active Substance: SECUKINUMAB
     Indication: PSORIASIS
     Dosage: 150 MGX2
     Route: 058
     Dates: start: 20160120
  4. FORMOTEROL [Concomitant]
     Active Substance: FORMOTEROL
     Indication: ASTHMA
     Dosage: 6 UG, PRN
     Route: 065
     Dates: start: 201002
  5. CITALOPRAM [Concomitant]
     Active Substance: CITALOPRAM HYDROBROMIDE
     Indication: DEPRESSION
     Dosage: 10 MG, BID
     Route: 065
     Dates: start: 201403
  6. AIN457 [Suspect]
     Active Substance: SECUKINUMAB
     Dosage: 150 MGX2
     Route: 058
     Dates: start: 20160127

REACTIONS (1)
  - Asthma [Recovered/Resolved]

NARRATIVE: CASE EVENT DATE: 20160128
